FAERS Safety Report 5469925-2 (Version None)
Quarter: 2007Q3

REPORT INFORMATION
  Report Type: 
  Country: None (occurrence: None)
  Receive Date: 20070927
  Receipt Date: 20070913
  Transmission Date: 20080115
  Serious: Yes (Hospitalization)
  Sender: FDA-Public Use
  Company Number: HU-ELI_LILLY_AND_COMPANY-HU200709002576

PATIENT
  Age: 77 Year
  Sex: Female

DRUGS (2)
  1. HUMULIN R [Suspect]
  2. HUMULIN 70/30 [Suspect]

REACTIONS (3)
  - BLOOD GLUCOSE INCREASED [None]
  - BLOOD PRESSURE ABNORMAL [None]
  - EYE OPERATION [None]
